FAERS Safety Report 8964643 (Version 1)
Quarter: 2012Q4

REPORT INFORMATION
  Report Type: 
  Country: FR (occurrence: FR)
  Receive Date: 20121214
  Receipt Date: 20121214
  Transmission Date: 20130627
  Serious: Yes (Death, Hospitalization)
  Sender: FDA-Public Use
  Company Number: FR-EISAI INC-E7389-03259-SPO-FR

PATIENT
  Age: 64 None
  Sex: Female
  Weight: 74 kg

DRUGS (2)
  1. HALAVEN [Suspect]
     Indication: BREAST CANCER
     Route: 041
     Dates: start: 20120921, end: 20120928
  2. HALAVEN [Suspect]
     Indication: LIVER METASTASES
     Route: 041
     Dates: start: 20120831, end: 201209

REACTIONS (9)
  - Febrile neutropenia [Fatal]
  - Bone marrow failure [Unknown]
  - Hyponatraemia [Unknown]
  - Renal failure [Unknown]
  - Pleural effusion [Unknown]
  - Dysphonia [Unknown]
  - Spinal pain [Unknown]
  - Altered state of consciousness [Unknown]
  - Abdominal pain [Unknown]
